FAERS Safety Report 7036510-0 (Version None)
Quarter: 2010Q4

REPORT INFORMATION
  Report Type: 
  Country: None (occurrence: None)
  Receive Date: 20101011
  Receipt Date: 20101001
  Transmission Date: 20110411
  Serious: Yes (Hospitalization)
  Sender: FDA-Public Use
  Company Number: US-BIOGENIDEC-2010BI026250

PATIENT
  Age: 28 Year
  Sex: Female
  Weight: 117 kg

DRUGS (2)
  1. TYSABRI [Suspect]
     Indication: MULTIPLE SCLEROSIS
     Route: 042
     Dates: start: 20091120, end: 20100301
  2. TYSABRI [Suspect]
     Route: 042
     Dates: start: 20100601

REACTIONS (6)
  - HYPOAESTHESIA EYE [None]
  - MULTIPLE SCLEROSIS RELAPSE [None]
  - MUSCLE STRAIN [None]
  - ROAD TRAFFIC ACCIDENT [None]
  - STRESS [None]
  - TEMPERATURE INTOLERANCE [None]
